FAERS Safety Report 5764680-0 (Version None)
Quarter: 2008Q2

REPORT INFORMATION
  Report Type: 
  Country: None (occurrence: None)
  Receive Date: 20080611
  Receipt Date: 20080530
  Transmission Date: 20081010
  Serious: Yes (Other)
  Sender: FDA-Public Use
  Company Number: PHHO2008IT06924

PATIENT
  Sex: Male
  Weight: 64 kg

DRUGS (1)
  1. TASIGNA [Suspect]
     Indication: GASTROINTESTINAL STROMAL TUMOUR
     Dosage: 800MG DAILY
     Route: 048
     Dates: start: 20080522, end: 20080523

REACTIONS (4)
  - DIZZINESS [None]
  - GENERAL PHYSICAL HEALTH DETERIORATION [None]
  - NYSTAGMUS [None]
  - VISUAL ACUITY REDUCED [None]
